FAERS Safety Report 13553323 (Version 1)
Quarter: 2017Q2

REPORT INFORMATION
  Report Type: Spontaneous
  Country: US (occurrence: US)
  Receive Date: 20170516
  Receipt Date: 20170516
  Transmission Date: 20170830
  Serious: Yes (Other)
  Sender: FDA-Public Use
  Company Number: None

PATIENT
  Age: 55 Year
  Sex: Female
  Weight: 62.1 kg

DRUGS (3)
  1. ARAVA [Concomitant]
     Active Substance: LEFLUNOMIDE
  2. METHOTREXATE. [Suspect]
     Active Substance: METHOTREXATE
     Indication: RHEUMATOID ARTHRITIS
     Dates: start: 20101228, end: 20170515
  3. IBUPROPHEN [Concomitant]
     Active Substance: IBUPROFEN

REACTIONS (4)
  - Impaired work ability [None]
  - Nausea [None]
  - Cognitive disorder [None]
  - Amnesia [None]

NARRATIVE: CASE EVENT DATE: 20160514
